FAERS Safety Report 4982203-0 (Version None)
Quarter: 2006Q2

REPORT INFORMATION
  Report Type: 
  Country: None (occurrence: None)
  Receive Date: 20060419
  Receipt Date: 20060331
  Transmission Date: 20061013
  Serious: Yes (Hospitalization)
  Sender: FDA-Public Use
  Company Number: US200603000685

PATIENT
  Age: 79 Year
  Sex: Male
  Weight: 77.1 kg

DRUGS (15)
  1. SOMATROPIN (SOMATROPIN) VIAL [Suspect]
     Indication: HYPOPITUITARISM
     Dosage: 0.3MG, DAILY (1/D), SUBCUTANEOUS
     Route: 058
     Dates: start: 20050501, end: 20050925
  2. TESTOSTERONE [Concomitant]
  3. INSULIN HUMAN (INSULIN HUMAN) [Concomitant]
  4. ASPIRIN [Concomitant]
  5. GLIPIZIDE [Concomitant]
  6. LISINOPRIL [Concomitant]
  7. ZOCOR [Concomitant]
  8. VERAPAMIL [Concomitant]
  9. AVANDIA [Concomitant]
  10. MICRO-K (POTASSIUM CHLORIDE) [Concomitant]
  11. NITROGLYCERIN [Concomitant]
  12. FUROSEMIDE [Concomitant]
  13. NIASPAN [Concomitant]
  14. ALBUTEROL [Concomitant]
  15. CENTRUM (MINERALS NOS, VITAMINS NOS) [Concomitant]

REACTIONS (4)
  - BLOOD CREATININE INCREASED [None]
  - BLOOD UREA INCREASED [None]
  - CHOLELITHIASIS [None]
  - ROAD TRAFFIC ACCIDENT [None]
